FAERS Safety Report 7740970-7 (Version None)
Quarter: 2011Q3

REPORT INFORMATION
  Report Type: 
  Country: None (occurrence: None)
  Receive Date: 20110909
  Receipt Date: 20110830
  Transmission Date: 20111222
  Serious: Yes (Hospitalization)
  Sender: FDA-Public Use
  Company Number: US-BAYER-2011-016700

PATIENT
  Age: 24 Year
  Sex: Female
  Weight: 77 kg

DRUGS (7)
  1. AMITRIPTYLINE HCL [Concomitant]
     Dosage: UNK
     Dates: start: 20081217
  2. PLAXIL [Concomitant]
     Dosage: UNK
     Dates: start: 20081110, end: 20081217
  3. PAROXETINE HCL [Concomitant]
     Dosage: UNK
     Dates: start: 20081203
  4. YAZ [Suspect]
     Indication: CONTRACEPTION
     Dosage: UNK
     Route: 048
     Dates: start: 20080601, end: 20090101
  5. CEFUROXIME [Concomitant]
     Dosage: UNK
     Dates: start: 20081027
  6. YAZ [Suspect]
     Indication: PREMENSTRUAL SYNDROME
  7. PROAIR HFA [Concomitant]
     Dosage: UNK
     Dates: start: 20081027

REACTIONS (3)
  - PULMONARY EMBOLISM [None]
  - INJURY [None]
  - PAIN [None]
